FAERS Safety Report 5128230-4 (Version None)
Quarter: 2006Q4

REPORT INFORMATION
  Report Type: 
  Country: None (occurrence: None)
  Receive Date: 20061011
  Receipt Date: 20060908
  Transmission Date: 20070319
  Serious: Yes (Other)
  Sender: FDA-Public Use
  Company Number: CHNY2006JP02412

PATIENT
  Age: 51 Year
  Sex: Male
  Weight: 63 kg

DRUGS (2)
  1. NICOTINELL TTS (NCH) (NICOTINE) TRANS-THERAPEUTIC-SYSTEM [Suspect]
     Indication: SMOKING CESSATION THERAPY
     Dosage: 21 MG, QD, TRANSDERMAL; 14 MG QD, TRANSDERMAL
     Route: 062
     Dates: start: 20060710, end: 20060723
  2. NICOTINELL TTS (NCH) (NICOTINE) TRANS-THERAPEUTIC-SYSTEM [Suspect]
     Indication: SMOKING CESSATION THERAPY
     Dosage: 21 MG, QD, TRANSDERMAL; 14 MG QD, TRANSDERMAL
     Route: 062
     Dates: start: 20060724, end: 20060803

REACTIONS (4)
  - APPLICATION SITE PRURITUS [None]
  - DERMATITIS [None]
  - GENERALISED ERYTHEMA [None]
  - RASH GENERALISED [None]
